FAERS Safety Report 4318299-9 (Version None)
Quarter: 2004Q1

REPORT INFORMATION
  Report Type: 
  Country: None (occurrence: None)
  Receive Date: 20040315
  Receipt Date: 20040303
  Transmission Date: 20041129
  Serious: Yes (Hospitalization)
  Sender: FDA-Public Use
  Company Number: 2004UW03925

PATIENT
  Age: 44 Year
  Sex: Male
  Weight: 97.5234 kg

DRUGS (4)
  1. CRESTOR [Suspect]
     Indication: HYPERTRIGLYCERIDAEMIA
     Dosage: 10 MG QD PO
     Route: 048
     Dates: start: 20031020
  2. METHADONE [Concomitant]
  3. REMERON [Concomitant]
  4. ACIPHEX [Concomitant]

REACTIONS (14)
  - ASTHENIA [None]
  - BODY TEMPERATURE INCREASED [None]
  - DEEP VEIN THROMBOSIS [None]
  - DRUG INEFFECTIVE [None]
  - HOT FLUSH [None]
  - INTERVERTEBRAL DISC DEGENERATION [None]
  - INTERVERTEBRAL DISC PROTRUSION [None]
  - NAUSEA [None]
  - NEUROPATHY PERIPHERAL [None]
  - PARAESTHESIA [None]
  - RENAL FAILURE [None]
  - RHABDOMYOLYSIS [None]
  - SENSORY DISTURBANCE [None]
  - VOMITING [None]
